FAERS Safety Report 7274356-9 (Version None)
Quarter: 2011Q1

REPORT INFORMATION
  Report Type: 
  Country: None (occurrence: None)
  Receive Date: 20110131
  Receipt Date: 20110131
  Transmission Date: 20110831
  Serious: No
  Sender: FDA-Public Use
  Company Number: None

PATIENT
  Sex: Male
  Weight: 111.4 kg

DRUGS (1)
  1. ULTRACET [Suspect]
     Indication: ARTHRITIS
     Dosage: ULTRACET, 1 PILL 3/DAY AS NEEDED ORALLY
     Route: 048
     Dates: start: 20101101

REACTIONS (8)
  - ANXIETY [None]
  - MUSCLE SPASMS [None]
  - SOCIAL AVOIDANT BEHAVIOUR [None]
  - GASTROOESOPHAGEAL REFLUX DISEASE [None]
  - WITHDRAWAL SYNDROME [None]
  - ABDOMINAL PAIN UPPER [None]
  - ATRIAL FIBRILLATION [None]
  - NERVOUSNESS [None]
